FAERS Safety Report 8767353 (Version 1)
Quarter: 2012Q4

REPORT INFORMATION
  Report Type: 
  Country: JP (occurrence: JP)
  Receive Date: 20120904
  Receipt Date: 20120904
  Transmission Date: 20130627
  Serious: Yes (Other)
  Sender: FDA-Public Use
  Company Number: JP-PFIZER INC-2012212515

PATIENT
  Age: 68 Year
  Sex: Female

DRUGS (1)
  1. MIGLITOL [Suspect]
     Indication: TYPE 2 DIABETES MELLITUS
     Dosage: 50 mg, 3x/day
     Route: 048
     Dates: start: 20110819, end: 20120410

REACTIONS (1)
  - Interstitial lung disease [Recovered/Resolved]
